FAERS Safety Report 8041039-7 (Version None)
Quarter: 2012Q1

REPORT INFORMATION
  Report Type: 
  Country: None (occurrence: None)
  Receive Date: 20120109
  Receipt Date: 20111223
  Transmission Date: 20120608
  Serious: Yes (Hospitalization, Other)
  Sender: FDA-Public Use
  Company Number: 2011SGN00299

PATIENT
  Age: 23 Year
  Sex: Male

DRUGS (1)
  1. ADCETRIS [Suspect]
     Indication: HODGKIN'S DISEASE
     Dosage: 1.8 MG/KG, Q21D
     Dates: start: 20110922, end: 20111013

REACTIONS (14)
  - CANDIDIASIS [None]
  - HEPATIC STEATOSIS [None]
  - ATELECTASIS [None]
  - PANCREATITIS [None]
  - STAPHYLOCOCCAL INFECTION [None]
  - HYPOTENSION [None]
  - GENERALISED OEDEMA [None]
  - ENTEROCOCCAL INFECTION [None]
  - PYREXIA [None]
  - SEPSIS [None]
  - ACUTE RESPIRATORY DISTRESS SYNDROME [None]
  - CULTURE POSITIVE [None]
  - ASPIRATION TRACHEAL ABNORMAL [None]
  - CULTURE STOOL POSITIVE [None]
